FAERS Safety Report 8578741-4 (Version None)
Quarter: 2012Q3

REPORT INFORMATION
  Report Type: 
  Country: None (occurrence: None)
  Receive Date: 20120808
  Receipt Date: 20120731
  Transmission Date: 20120928
  Serious: Yes (Hospitalization)
  Sender: FDA-Public Use
  Company Number: US-BAYER-2012-079072

PATIENT
  Age: 29 Year
  Sex: Female
  Weight: 112 kg

DRUGS (17)
  1. VICODIN [Concomitant]
  2. CEPHALEXIN [Concomitant]
     Dosage: 500 MG, UNK
     Route: 048
  3. PHENERGAN HCL [Concomitant]
     Dosage: 25 MG, UNK
     Dates: start: 20091201, end: 20100507
  4. TYLENOL [Concomitant]
     Dosage: UNK UNK, PRN
     Route: 048
     Dates: start: 20100504
  5. HYDROCODONE BITARTRATE AND ACETAMINOPHEN [Concomitant]
     Dosage: UNK
     Route: 048
  6. DROSPIRENONE AND ETHINYL ESTRADIOL [Suspect]
  7. METFORMIN HYDROCHLORIDE [Concomitant]
     Indication: POLYCYSTIC OVARIES
     Dosage: 1000 MG, DAILY
     Route: 048
     Dates: start: 20100504
  8. NEURONTIN [Concomitant]
     Dosage: 300 MG, UNK
     Dates: start: 20100507, end: 20100628
  9. DIAZEPAM [Concomitant]
     Dosage: 5 MG, UNK
  10. FOLIC ACID [Concomitant]
     Dosage: UNK
     Route: 048
     Dates: start: 20100504
  11. HYDROMORPHONE HCL [Concomitant]
     Dosage: 2 MG, UNK
  12. MULTI-VITAMINS [Concomitant]
     Route: 048
  13. YAZ [Suspect]
  14. ZOFRAN [Concomitant]
  15. NICODERM [Concomitant]
     Dosage: UNK
     Route: 048
     Dates: start: 20100504
  16. NICOTINE [Concomitant]
     Dosage: 14 MG, UNK
     Route: 062
  17. OMEPRAZOLE [Concomitant]
     Indication: GASTROOESOPHAGEAL REFLUX DISEASE
     Dosage: 20 MG, UNK
     Route: 048

REACTIONS (2)
  - CEREBROVASCULAR ACCIDENT [None]
  - DEEP VEIN THROMBOSIS [None]
